FAERS Safety Report 14249176 (Version 2)
Quarter: 2018Q1

REPORT INFORMATION
  Report Type: Report from Study
  Country: US (occurrence: US)
  Receive Date: 20171204
  Receipt Date: 20180213
  Transmission Date: 20180508
  Serious: Yes (Hospitalization)
  Sender: FDA-Public Use
  Company Number: US-ACTELION-A-US2017-157277

PATIENT
  Age: 77 Year
  Sex: Female

DRUGS (2)
  1. OPSUMIT [Suspect]
     Active Substance: MACITENTAN
     Indication: PULMONARY ARTERIAL HYPERTENSION
     Dosage: 10 MG, QD
     Route: 048
  2. WARFARIN [Concomitant]
     Active Substance: WARFARIN

REACTIONS (8)
  - Back pain [Unknown]
  - Dyspnoea exertional [Recovering/Resolving]
  - Dysphonia [Unknown]
  - Cyst [Unknown]
  - Barrett^s oesophagus [Unknown]
  - Chest pain [Recovered/Resolved]
  - Gastrointestinal haemorrhage [Unknown]
  - Burning sensation [Unknown]
